FAERS Safety Report 12555530 (Version 1)
Quarter: 2016Q3

REPORT INFORMATION
  Report Type: Spontaneous
  Country: US (occurrence: None)
  Receive Date: 20160713
  Receipt Date: 20160713
  Transmission Date: 20161109
  Serious: Yes (Death)
  Sender: FDA-Public Use
  Company Number: None

PATIENT
  Age: 75 Year
  Sex: Female

DRUGS (6)
  1. CLOPIDOGREL [Concomitant]
     Active Substance: CLOPIDOGREL BISULFATE
  2. DIAZEPAM. [Concomitant]
     Active Substance: DIAZEPAM
  3. LASIX [Concomitant]
     Active Substance: FUROSEMIDE
  4. ACETAMINOPHEN\HYDROCODONE BITARTRATE [Concomitant]
     Active Substance: ACETAMINOPHEN\HYDROCODONE BITARTRATE
  5. MONTELUKAST SODIUM. [Concomitant]
     Active Substance: MONTELUKAST SODIUM
  6. FORTEO [Suspect]
     Active Substance: TERIPARATIDE
     Route: 058
     Dates: start: 20160225, end: 20160705

REACTIONS (1)
  - Death [None]

NARRATIVE: CASE EVENT DATE: 20160705
